FAERS Safety Report 9519391 (Version 1)
Quarter: 2013Q3

REPORT INFORMATION
  Report Type: Spontaneous
  Country: BR (occurrence: BR)
  Receive Date: 20130912
  Receipt Date: 20130912
  Transmission Date: 20140515
  Serious: Yes (Other)
  Sender: FDA-Public Use
  Company Number: BR-ABBOTT-13P-020-1143272-00

PATIENT
  Sex: Female

DRUGS (10)
  1. HUMIRA [Suspect]
     Indication: PRODUCT USED FOR UNKNOWN INDICATION
  2. ETANERCEPT [Suspect]
     Indication: ANKYLOSING SPONDYLITIS
     Dates: start: 2009
  3. ETANERCEPT [Suspect]
  4. ETANERCEPT [Suspect]
     Dates: end: 201306
  5. HORMONES [Suspect]
     Indication: MENOPAUSE
  6. GOLIMUMAB [Suspect]
     Indication: ANKYLOSING SPONDYLITIS
     Dates: start: 20130627
  7. LEVOTHYROXINE SODIUM [Concomitant]
     Indication: HYPOTHYROIDISM
  8. ACETAMINOPHEN [Concomitant]
     Indication: PAIN
  9. OMEPRAZOLE [Concomitant]
     Indication: GASTRIC DISORDER
  10. OMEPRAZOLE [Concomitant]
     Indication: PROPHYLAXIS

REACTIONS (22)
  - Varicose vein [Unknown]
  - Haematoma [Unknown]
  - Stomatitis [Unknown]
  - Oral candidiasis [Recovered/Resolved]
  - Oral discomfort [Unknown]
  - Decreased appetite [Unknown]
  - Weight decreased [Unknown]
  - Oral candidiasis [Recovered/Resolved]
  - Tachycardia [Recovered/Resolved]
  - Arrhythmia [Recovered/Resolved]
  - Dizziness [Recovered/Resolved]
  - Arthralgia [Recovered/Resolved]
  - Muscle rigidity [Recovered/Resolved]
  - Mobility decreased [Recovered/Resolved]
  - Ankylosing spondylitis [Unknown]
  - Pain [Unknown]
  - Arthralgia [Unknown]
  - Myalgia [Unknown]
  - Red blood cell sedimentation rate increased [Unknown]
  - Irritability [Unknown]
  - Depression [Unknown]
  - Arthralgia [Unknown]
